FAERS Safety Report 9358337 (Version 1)
Quarter: 2013Q2

REPORT INFORMATION
  Report Type: Report from Study
  Country: US (occurrence: US)
  Receive Date: 20130620
  Receipt Date: 20130620
  Transmission Date: 20140414
  Serious: Yes (Other)
  Sender: FDA-Public Use
  Company Number: US-ACTELION-A-NJ2013-84668

PATIENT
  Age: 81 Year
  Sex: Female

DRUGS (2)
  1. TRACLEER [Suspect]
     Indication: PULMONARY ARTERIAL HYPERTENSION
     Dosage: UNK
     Route: 048
  2. TRACLEER [Suspect]
     Dosage: 62.5 MG, UNK
     Route: 048

REACTIONS (4)
  - Spinal fracture [Unknown]
  - Insomnia [Unknown]
  - Sinusitis [Unknown]
  - Dyspnoea exertional [Unknown]
